FAERS Safety Report 20988380 (Version 1)
Quarter: 2022Q2

REPORT INFORMATION
  Report Type: Spontaneous
  Country: US (occurrence: None)
  Receive Date: 20220620
  Receipt Date: 20220620
  Transmission Date: 20220721
  Serious: Yes (Other)
  Sender: FDA-Public Use
  Company Number: None

PATIENT
  Age: 37 Year
  Sex: Female
  Weight: 63.5 kg

DRUGS (1)
  1. SODIUM FERRIC GLUCONATE COMPLEX [Suspect]
     Active Substance: SODIUM FERRIC GLUCONATE COMPLEX
     Indication: Normocytic anaemia
     Route: 042

REACTIONS (7)
  - Fall [None]
  - Infusion related reaction [None]
  - Hypotension [None]
  - Chest pain [None]
  - Nausea [None]
  - Vomiting [None]
  - Hypersensitivity [None]
